FAERS Safety Report 4382328-7 (Version None)
Quarter: 2004Q2

REPORT INFORMATION
  Report Type: 
  Country: None (occurrence: None)
  Receive Date: 20040616
  Receipt Date: 20040610
  Transmission Date: 20050107
  Serious: Yes (Hospitalization)
  Sender: FDA-Public Use
  Company Number: FRWYE709719APR04

PATIENT
  Age: 56 Year
  Sex: Male

DRUGS (2)
  1. RAPAMUNE [Suspect]
     Indication: PROPHYLAXIS AGAINST TRANSPLANT REJECTION
     Dosage: 5 MG DAILY AT THE TIME OF THE EVENT ONSET
     Route: 048
     Dates: start: 20030528
  2. CELLCEPT [Concomitant]

REACTIONS (1)
  - WOUND EVISCERATION [None]
